FAERS Safety Report 10845615 (Version 3)
Quarter: 2015Q1

REPORT INFORMATION
  Report Type: Report from Study
  Country: JP (occurrence: JP)
  Receive Date: 20150220
  Receipt Date: 20150302
  Transmission Date: 20150721
  Serious: Yes (Life-Threatening, Hospitalization, Other)
  Sender: FDA-Public Use
  Company Number: JP-PFIZER INC-2015062104

PATIENT
  Age: 53 Year
  Sex: Male

DRUGS (9)
  1. FOSPHENYTOIN SODIUM. [Suspect]
     Active Substance: FOSPHENYTOIN SODIUM
     Indication: CONVULSION PROPHYLAXIS
     Dosage: 18 MG/KG, 37.5 MG/MIN, 0.9% PHYSIOLOGICAL SALINE, DILUTION RATIO 1:7.7
     Dates: start: 20140820, end: 20140820
  2. PROPOFOL. [Concomitant]
     Active Substance: PROPOFOL
     Dosage: 600 ML/DAY
     Dates: start: 20140820
  3. FOSPHENYTOIN SODIUM. [Suspect]
     Active Substance: FOSPHENYTOIN SODIUM
     Dosage: 6.25 MG/KG, 12.5 MG/MIN, 0.9% PHYSIOLOGICAL SALINE, DILUTION RATIO 1:21
     Dates: start: 20140822
  4. CEFAZOLIN [Concomitant]
     Active Substance: CEFAZOLIN
     Dosage: 3 G/DAY
     Dates: start: 20140824
  5. GLYCEREB [Concomitant]
     Dosage: 600 ML/DAY
     Dates: start: 20140820
  6. PHENYTOIN. [Concomitant]
     Active Substance: PHENYTOIN
     Indication: EPILEPSY
     Dosage: 200 MG/DAY
     Route: 048
     Dates: start: 20140821
  7. FOSPHENYTOIN SODIUM. [Suspect]
     Active Substance: FOSPHENYTOIN SODIUM
     Dosage: 6.25 MG/KG, 12.5 MG/MIN, 0.9% PHYSIOLOGICAL SALINE, DILUTION RATIO 1:21
     Dates: start: 20140821, end: 20140821
  8. OMEPRAZOLE. [Concomitant]
     Active Substance: OMEPRAZOLE
     Dosage: 40 MG/DAY
     Dates: start: 20140820
  9. PROPOFOL. [Concomitant]
     Active Substance: PROPOFOL
     Indication: EPILEPSY
     Dosage: 600 ML/DAY
     Dates: start: 20140820, end: 20140824

REACTIONS (6)
  - Neurogenic bladder [Not Recovered/Not Resolved]
  - Renal impairment [Recovering/Resolving]
  - Platelet count decreased [Unknown]
  - Drug eruption [Recovered/Resolved]
  - Meningitis bacterial [Recovered/Resolved]
  - Hepatic function abnormal [Recovering/Resolving]

NARRATIVE: CASE EVENT DATE: 20140825
